FAERS Safety Report 23350419 (Version 1)
Quarter: 2023Q4

REPORT INFORMATION
  Report Type: Spontaneous
  Country: BE (occurrence: BE)
  Receive Date: 20231229
  Receipt Date: 20231229
  Transmission Date: 20240110
  Serious: Yes (Other)
  Sender: FDA-Public Use
  Company Number: BE-002147023-NVSC2023BE150301

PATIENT
  Age: 11 Month
  Sex: Male

DRUGS (2)
  1. ZOLGENSMA [Suspect]
     Active Substance: ONASEMNOGENE ABEPARVOVEC-XIOI
     Indication: Spinal muscular atrophy
     Dosage: UNK, ONCE/SINGLE, (1 VIAL 5.5ML (BATCH NUMBER: 606835-21), 2 VIALS 8.3ML (BATCH NUMBER:  610024-21))
     Route: 041
     Dates: start: 20220415
  2. ZOLGENSMA [Suspect]
     Active Substance: ONASEMNOGENE ABEPARVOVEC-XIOI
     Indication: SMN2 status assay

REACTIONS (3)
  - Langerhans^ cell histiocytosis [Unknown]
  - Vasculitis [Recovered/Resolved]
  - Splenomegaly [Unknown]

NARRATIVE: CASE EVENT DATE: 20220613
